FAERS Safety Report 18820381 (Version 2)
Quarter: 2021Q1

REPORT INFORMATION
  Report Type: Spontaneous
  Country: JP (occurrence: JP)
  Receive Date: 20210202
  Receipt Date: 20210215
  Transmission Date: 20210419
  Serious: Yes (Other)
  Sender: FDA-Public Use
  Company Number: NVSJ2021JP001599

PATIENT
  Age: 68 Year
  Sex: Female
  Weight: 57 kg

DRUGS (2)
  1. ZOMETA [Suspect]
     Active Substance: ZOLEDRONIC ACID
     Indication: PRODUCT USED FOR UNKNOWN INDICATION
     Dosage: UNK
     Route: 065
  2. ZOLEDRONIC ACID [Suspect]
     Active Substance: ZOLEDRONIC ACID
     Indication: PRODUCT USED FOR UNKNOWN INDICATION
     Dosage: UNK
     Route: 065

REACTIONS (11)
  - Lymphadenopathy [Unknown]
  - Excessive granulation tissue [Unknown]
  - Bone disorder [Unknown]
  - Osteomyelitis [Unknown]
  - Gingival swelling [Unknown]
  - Exposed bone in jaw [Unknown]
  - Osteitis [Unknown]
  - Osteonecrosis of jaw [Unknown]
  - Gingival erosion [Unknown]
  - Bone sequestrum [Unknown]
  - Osteosclerosis [Unknown]

NARRATIVE: CASE EVENT DATE: 201901
